FAERS Safety Report 15997550 (Version 1)
Quarter: 2019Q1

REPORT INFORMATION
  Report Type: Spontaneous
  Country: US (occurrence: US)
  Receive Date: 20190222
  Receipt Date: 20190222
  Transmission Date: 20190418
  Serious: No
  Sender: FDA-Public Use
  Company Number: US-SUNOVION-2019SUN000586

PATIENT
  Sex: Male
  Weight: 80.73 kg

DRUGS (3)
  1. FLUOCINONIDE. [Concomitant]
     Active Substance: FLUOCINONIDE
     Indication: ECZEMA
     Dosage: UNK
     Route: 065
  2. APTIOM [Suspect]
     Active Substance: ESLICARBAZEPINE ACETATE
     Indication: MIGRAINE WITH AURA
     Dosage: 400 MG (STARTED 6 WEEKS AGO)
     Route: 048
  3. APTIOM [Suspect]
     Active Substance: ESLICARBAZEPINE ACETATE
     Dosage: 800 MG, QD (STARTED 5 WEEKS AGO)
     Route: 048

REACTIONS (5)
  - Erythema [Not Recovered/Not Resolved]
  - Off label use [Unknown]
  - Therapeutic response unexpected [Unknown]
  - Tinea pedis [Not Recovered/Not Resolved]
  - Fungal skin infection [Not Recovered/Not Resolved]
